FAERS Safety Report 11315987 (Version 2)
Quarter: 2016Q3

REPORT INFORMATION
  Report Type: Spontaneous
  Country: US (occurrence: US)
  Receive Date: 20150728
  Receipt Date: 20160802
  Transmission Date: 20161109
  Serious: No
  Sender: FDA-Public Use
  Company Number: US-ASTRAZENECA-2015SE71363

PATIENT
  Age: 33339 Day
  Sex: Female
  Weight: 63.5 kg

DRUGS (4)
  1. TUDORZA PRESSAIR [Suspect]
     Active Substance: ACLIDINIUM BROMIDE
     Indication: EMPHYSEMA
     Dosage: SAMPLE
     Route: 055
  2. ALBUTEROL. [Concomitant]
     Active Substance: ALBUTEROL
     Indication: EMPHYSEMA
     Dosage: AS REQUIRED
     Route: 055
  3. TUDORZA PRESSAIR [Suspect]
     Active Substance: ACLIDINIUM BROMIDE
     Indication: EMPHYSEMA
     Route: 055
     Dates: start: 20150706
  4. TORDAL [Concomitant]
     Indication: ARTHRITIS
     Dosage: 10.0MG AS REQUIRED
     Route: 048

REACTIONS (3)
  - Drug dose omission [Unknown]
  - Device failure [Unknown]
  - Dyspnoea [Unknown]

NARRATIVE: CASE EVENT DATE: 20150721
